FAERS Safety Report 13572142 (Version 2)
Quarter: 2017Q3

REPORT INFORMATION
  Report Type: Report from Study
  Country: US (occurrence: US)
  Receive Date: 20170523
  Receipt Date: 20170714
  Transmission Date: 20171127
  Serious: Yes (Death, Hospitalization, Other)
  Sender: FDA-Public Use
  Company Number: US-GILEAD-2017-0273992

PATIENT
  Age: 78 Year
  Sex: Female

DRUGS (12)
  1. ATENOLOL. [Concomitant]
     Active Substance: ATENOLOL
  2. CLOPIDOGREL [Concomitant]
     Active Substance: CLOPIDOGREL BISULFATE
  3. CRESTOR [Concomitant]
     Active Substance: ROSUVASTATIN CALCIUM
  4. VALSARTAN. [Concomitant]
     Active Substance: VALSARTAN
  5. ERYTHROMYCIN. [Concomitant]
     Active Substance: ERYTHROMYCIN
  6. ONDANSETRON [Concomitant]
     Active Substance: ONDANSETRON
  7. AMBRISENTAN [Suspect]
     Active Substance: AMBRISENTAN
     Indication: PRODUCT USED FOR UNKNOWN INDICATION
     Dosage: 10 MG, QD
     Route: 065
  8. FUROSEMIDE. [Concomitant]
     Active Substance: FUROSEMIDE
  9. SERTRALINE [Concomitant]
     Active Substance: SERTRALINE HYDROCHLORIDE
  10. ADCIRCA [Concomitant]
     Active Substance: TADALAFIL
  11. DIAZEPAM. [Concomitant]
     Active Substance: DIAZEPAM
  12. METFORMIN [Concomitant]
     Active Substance: METFORMIN HYDROCHLORIDE

REACTIONS (3)
  - Death [Fatal]
  - Head injury [Unknown]
  - Fall [Unknown]

NARRATIVE: CASE EVENT DATE: 20170519
